FAERS Safety Report 19458050 (Version 1)
Quarter: 2021Q2

REPORT INFORMATION
  Report Type: Report from Study
  Country: JP (occurrence: JP)
  Receive Date: 20210624
  Receipt Date: 20210624
  Transmission Date: 20210717
  Serious: Yes (Hospitalization, Disabling)
  Sender: FDA-Public Use
  Company Number: JP-BIOGEN-2018BI00625428

PATIENT
  Age: 46 Year
  Sex: Female
  Weight: 46 kg

DRUGS (9)
  1. TYSABRI [Suspect]
     Active Substance: NATALIZUMAB
     Indication: RELAPSING-REMITTING MULTIPLE SCLEROSIS
     Route: 050
     Dates: start: 20180724, end: 20180824
  2. HIRUDOID [Concomitant]
     Active Substance: GLYCOSAMINOGLYCANS
     Indication: DRY SKIN
     Route: 003
     Dates: start: 20180420
  3. NEW LECICARBON [Concomitant]
     Active Substance: SODIUM BICARBONATE\SODIUM PHOSPHATE, MONOBASIC
     Indication: RELAPSING-REMITTING MULTIPLE SCLEROSIS
     Route: 054
     Dates: start: 20171208
  4. LYRICA [Concomitant]
     Active Substance: PREGABALIN
     Route: 048
     Dates: start: 20180410
  5. MOHRUS TAPE [Concomitant]
     Active Substance: KETOPROFEN
     Indication: RELAPSING-REMITTING MULTIPLE SCLEROSIS
     Route: 061
     Dates: start: 20170630
  6. TECFIDERA [Suspect]
     Active Substance: DIMETHYL FUMARATE
     Indication: RELAPSING-REMITTING MULTIPLE SCLEROSIS
     Route: 048
     Dates: start: 20171110, end: 20180724
  7. CALONAL [Concomitant]
     Active Substance: ACETAMINOPHEN
     Indication: RELAPSING-REMITTING MULTIPLE SCLEROSIS
     Route: 048
     Dates: start: 20180510, end: 20180622
  8. LYRICA [Concomitant]
     Active Substance: PREGABALIN
     Indication: RELAPSING-REMITTING MULTIPLE SCLEROSIS
     Route: 048
     Dates: start: 20180119
  9. NEW LECICARBON [Concomitant]
     Active Substance: SODIUM BICARBONATE\SODIUM PHOSPHATE, MONOBASIC
     Route: 054
     Dates: start: 20180511

REACTIONS (7)
  - Headache [Recovered/Resolved]
  - Multiple sclerosis relapse [Recovered/Resolved with Sequelae]
  - Rash [Recovered/Resolved]
  - Product use issue [Unknown]
  - Choking [Not Recovered/Not Resolved]
  - Hypersensitivity [Recovered/Resolved]
  - Drug specific antibody present [Unknown]

NARRATIVE: CASE EVENT DATE: 20180813
